FAERS Safety Report 8744093 (Version 2)
Quarter: 2012Q4

REPORT INFORMATION
  Report Type: 
  Country: US (occurrence: US)
  Receive Date: 20120824
  Receipt Date: 20121126
  Transmission Date: 20130627
  Serious: Yes (Hospitalization)
  Sender: FDA-Public Use
  Company Number: US-ASTRAZENECA-2012SE57670

PATIENT
  Age: 47 Year
  Sex: Female

DRUGS (2)
  1. NEXIUM [Suspect]
     Route: 048
  2. SIX DIFFERENT LAXATIVES [Concomitant]

REACTIONS (7)
  - Anaemia [Unknown]
  - Adverse event [Unknown]
  - Diabetic enteropathy [Unknown]
  - Diabetes mellitus [Unknown]
  - Gastric disorder [Unknown]
  - Malaise [Unknown]
  - Malaise [Unknown]
